FAERS Safety Report 11773655 (Version 1)
Quarter: 2015Q4

REPORT INFORMATION
  Report Type: Spontaneous
  Country: FR (occurrence: FR)
  Receive Date: 20151124
  Receipt Date: 20151124
  Transmission Date: 20160304
  Serious: Yes (Hospitalization)
  Sender: FDA-Public Use
  Company Number: FR-TEVA-609872ISR

PATIENT
  Sex: Female

DRUGS (8)
  1. UN-ALFA [Suspect]
     Active Substance: ALFACALCIDOL
     Dosage: 2 MICROGRAM DAILY;
     Route: 048
     Dates: start: 2011, end: 20150930
  2. IMOVANE [Concomitant]
     Active Substance: ZOPICLONE
     Route: 065
  3. TENORDATE [Concomitant]
     Active Substance: ATENOLOL\NIFEDIPINE
     Route: 065
  4. AZILECT [Suspect]
     Active Substance: RASAGILINE MESYLATE
     Dosage: 1 DOSAGE FORMS DAILY; STARTED SEVERAL YEARS AGO
     Route: 048
  5. MODOPAR 125 DISPERSIBLE (100 MG/ 25 MG) [Suspect]
     Active Substance: BENSERAZIDE HYDROCHLORIDE\LEVODOPA
     Route: 048
     Dates: start: 201503, end: 201508
  6. LEVOTHYROX [Concomitant]
     Active Substance: LEVOTHYROXINE
     Route: 065
  7. ESOMEPRAZOLE [Concomitant]
     Active Substance: ESOMEPRAZOLE
     Route: 065
  8. CERIS [Suspect]
     Active Substance: TROSPIUM CHLORIDE
     Dosage: 1 DOSAGE FORMS DAILY; STARTED SEVERAL YEARS AGO
     Route: 048
     Dates: end: 20150930

REACTIONS (3)
  - Hypercalcaemia [Recovered/Resolved]
  - Confusional state [Recovered/Resolved]
  - Hallucination [Recovered/Resolved]
